FAERS Safety Report 5486048-7 (Version None)
Quarter: 2007Q4

REPORT INFORMATION
  Report Type: 
  Country: None (occurrence: None)
  Receive Date: 20071012
  Receipt Date: 20071009
  Transmission Date: 20080405
  Serious: Yes (Disabling)
  Sender: FDA-Public Use
  Company Number: 2007SP020433

PATIENT
  Age: 59 Year
  Sex: Female

DRUGS (4)
  1. CELESTAMINE TAB [Suspect]
     Indication: PHARYNGITIS
     Dosage: 3 DF;QD;PO
     Route: 048
     Dates: start: 20070628, end: 20070702
  2. CELESTAMINE TAB [Suspect]
     Indication: RHINITIS
     Dosage: 3 DF;QD;PO
     Route: 048
     Dates: start: 20070628, end: 20070702
  3. RHINOTROPHYL (RHINOTROPHYL) [Suspect]
     Indication: RHINITIS
     Dosage: 4 DF;QD;NAS
     Route: 045
     Dates: start: 20070628, end: 20070702
  4. ACETAMINOPHEN [Suspect]
     Indication: PYREXIA
     Dosage: 3 GM;QD;PO
     Route: 048
     Dates: start: 20070628

REACTIONS (2)
  - AGEUSIA [None]
  - ANOSMIA [None]
